FAERS Safety Report 9519715 (Version 1)
Quarter: 2013Q1

REPORT INFORMATION
  Report Type: Spontaneous
  Country: US (occurrence: None)
  Receive Date: 20130305
  Receipt Date: 20130305
  Transmission Date: 20140127
  Serious: Yes (Life-Threatening, Hospitalization)
  Sender: FDA-Public Use
  Company Number: 163-21880-12010306

PATIENT
  Age: 73 Year
  Sex: Female
  Weight: 67.13 kg

DRUGS (12)
  1. REVLIMID [Suspect]
     Indication: PLASMA CELL MYELOMA
     Dosage: 25 MG, Q DAY X 21 DAYS, THEN 7 DAYS OFF, PO
     Route: 048
     Dates: start: 20111209
  2. FUROSEMIDE (FUROSEMIDE) (UNKNOWN) [Concomitant]
  3. LEXAPRO (ESCITALOPRAM OXALATE) (UNKNOWN) [Concomitant]
  4. OXYCONTIN (OXYCODONE HYDROCHLORIDE) (UNKNOWN) [Concomitant]
  5. OXYBUTNIN (OXYBUTYNIN) (UNKNOWN) [Concomitant]
  6. OMPERAZOLE (OMEPRAZOLE) (UNKNOWN) [Concomitant]
  7. PRAMIPEXOLE (PRAMIPEXOLE) (UNKNOWN) [Concomitant]
  8. HYDROMORPHONE (HYDROMORPHINE) (UNKNOWN) [Concomitant]
  9. ASPIRIN (ACETYLSALICYLIC ACID) (UNKNOWN) (ACETYLSALICYLIC ACID) [Concomitant]
  10. DECADRON [Concomitant]
  11. ZOMETA (ZOLEEDRONIC ACID) (UNKNOWN) [Concomitant]
  12. MVI (MVI) (UNKNOWN) [Concomitant]

REACTIONS (3)
  - Pulmonary embolism [None]
  - Local swelling [None]
  - Dyspnoea [None]
